FAERS Safety Report 7941687-6 (Version None)
Quarter: 2011Q4

REPORT INFORMATION
  Report Type: 
  Country: None (occurrence: None)
  Receive Date: 20111128
  Receipt Date: 20111128
  Transmission Date: 20120403
  Serious: No
  Sender: FDA-Public Use
  Company Number: None

PATIENT
  Age: 69 Year
  Sex: Female
  Weight: 72.121 kg

DRUGS (1)
  1. CITALOPRAM HYDROBROMIDE [Suspect]
     Indication: FIBROMYALGIA
     Dosage: 30/DOSAGE CARD
     Route: 048
     Dates: start: 20111101, end: 20111125

REACTIONS (4)
  - POOR QUALITY SLEEP [None]
  - PRODUCT ODOUR ABNORMAL [None]
  - PRODUCT TASTE ABNORMAL [None]
  - PRODUCT SUBSTITUTION ISSUE [None]
